FAERS Safety Report 7661769-6 (Version None)
Quarter: 2011Q3

REPORT INFORMATION
  Report Type: 
  Country: None (occurrence: None)
  Receive Date: 20110805
  Receipt Date: 20101026
  Transmission Date: 20111222
  Serious: No
  Sender: FDA-Public Use
  Company Number: US-ABBOTT-10P-163-0681763-00

PATIENT
  Sex: Female
  Weight: 74.91 kg

DRUGS (5)
  1. LIPITOR [Concomitant]
     Indication: BLOOD CHOLESTEROL INCREASED
  2. HYDROCHLOROTHIAZIDE [Concomitant]
     Indication: FLUID RETENTION
  3. NEXIUM [Concomitant]
     Indication: GASTROOESOPHAGEAL REFLUX DISEASE
  4. NIASPAN [Suspect]
     Indication: LOW DENSITY LIPOPROTEIN INCREASED
     Dates: start: 20100920, end: 20101024
  5. ARTHROTEC [Concomitant]
     Indication: ARTHRITIS

REACTIONS (4)
  - BLADDER DISCOMFORT [None]
  - ABDOMINAL PAIN UPPER [None]
  - BLADDER PAIN [None]
  - NAUSEA [None]
